FAERS Safety Report 6439230-6 (Version None)
Quarter: 2009Q4

REPORT INFORMATION
  Report Type: 
  Country: None (occurrence: None)
  Receive Date: 20091113
  Receipt Date: 20091102
  Transmission Date: 20100525
  Serious: Yes (Hospitalization, Other)
  Sender: FDA-Public Use
  Company Number: US-PFIZER INC-2009292760

PATIENT
  Sex: Female
  Weight: 73.481 kg

DRUGS (3)
  1. AROMASIN [Suspect]
     Indication: NEOPLASM MALIGNANT
     Dosage: 25 MG, 1X/DAY
     Route: 048
     Dates: start: 20050101
  2. LORAZEPAM [Concomitant]
  3. SIMVASTATIN [Concomitant]

REACTIONS (3)
  - ASTHENIA [None]
  - HEART RATE DECREASED [None]
  - HYPOTENSION [None]
